FAERS Safety Report 7528084-2 (Version None)
Quarter: 2011Q2

REPORT INFORMATION
  Report Type: 
  Country: None (occurrence: None)
  Receive Date: 20110531
  Receipt Date: 20110516
  Transmission Date: 20111010
  Serious: Yes (Other)
  Sender: FDA-Public Use
  Company Number: FK201100982

PATIENT
  Age: 4 Year
  Sex: Male

DRUGS (1)
  1. DEXAMETHASONE SODIUM PHOSPHATE [Suspect]
     Indication: INFECTION PROPHYLAXIS
     Dosage: 4 MG, Q 6 H, INTRAVENOUS, 1 MG, BID, ORAL
     Route: 042

REACTIONS (5)
  - POSTERIOR REVERSIBLE ENCEPHALOPATHY SYNDROME [None]
  - HYPERTENSION [None]
  - MENTAL STATUS CHANGES [None]
  - DISEASE RECURRENCE [None]
  - CONVULSION [None]
